FAERS Safety Report 26209325 (Version 1)
Quarter: 2025Q4

REPORT INFORMATION
  Report Type: Spontaneous
  Country: AR (occurrence: AR)
  Receive Date: 20251229
  Receipt Date: 20251229
  Transmission Date: 20260118
  Serious: Yes (Other)
  Sender: PFIZER
  Company Number: AR-PFIZER INC-PV202500147843

PATIENT
  Age: 41 Year

DRUGS (3)
  1. RITUXIMAB [Suspect]
     Active Substance: RITUXIMAB
     Indication: B-cell type acute leukaemia
     Dosage: UNK (NON-INTENSIVE INDUCTION REGIMEN)
     Dates: start: 2025
  2. VINCRISTINE [Suspect]
     Active Substance: VINCRISTINE
     Indication: B-cell type acute leukaemia
     Dosage: UNK (NON-INTENSIVE INDUCTION REGIMEN, ON MAINTENANCE)
     Dates: start: 2025
  3. DEXAMETHASONE [Suspect]
     Active Substance: DEXAMETHASONE
     Indication: B-cell type acute leukaemia
     Dosage: UNK (NON-INTENSIVE INDUCTION REGIMEN, ON MAINTENANCE)
     Dates: start: 2025

REACTIONS (4)
  - Pneumonia [Unknown]
  - Seizure [Unknown]
  - Hyperglycaemia [Unknown]
  - Off label use [Unknown]

NARRATIVE: CASE EVENT DATE: 20250101
